FAERS Safety Report 4959054-6 (Version None)
Quarter: 2006Q1

REPORT INFORMATION
  Report Type: 
  Country: None (occurrence: None)
  Receive Date: 20060331
  Receipt Date: 20060324
  Transmission Date: 20060701
  Serious: Yes (Life-Threatening, Hospitalization)
  Sender: FDA-Public Use
  Company Number: MX-BRISTOL-MYERS SQUIBB COMPANY-13326889

PATIENT
  Age: 75 Year
  Sex: Female
  Weight: 70 kg

DRUGS (6)
  1. IRBESARTAN [Suspect]
     Indication: HYPERTENSION
     Dates: start: 20041025
  2. BLINDED: PLACEBO [Suspect]
     Indication: HYPERTENSION
     Dates: start: 20041025
  3. BLINDED: CLOPIDOGREL BISULFATE [Suspect]
     Indication: PROPHYLAXIS
     Dates: start: 20041025
  4. ASPIRIN [Suspect]
     Indication: PROPHYLAXIS
     Dates: start: 20041025
  5. SPIRONOLACTONE [Concomitant]
  6. DIGOXIN [Concomitant]

REACTIONS (16)
  - ANAEMIA [None]
  - ANGINA UNSTABLE [None]
  - ANGIOPATHY [None]
  - ASTHMA [None]
  - BLOOD PRESSURE INADEQUATELY CONTROLLED [None]
  - BRONCHOPNEUMONIA [None]
  - CARDIAC FAILURE [None]
  - CARDIOMYOPATHY [None]
  - GENERAL PHYSICAL HEALTH DETERIORATION [None]
  - HAEMOPHILUS INFECTION [None]
  - LOSS OF CONSCIOUSNESS [None]
  - MULTI-ORGAN FAILURE [None]
  - RENAL IMPAIRMENT [None]
  - RESPIRATORY FAILURE [None]
  - RETROPERITONEAL HAEMORRHAGE [None]
  - SEPTIC SHOCK [None]
